FAERS Safety Report 8149737-1 (Version None)
Quarter: 2012Q1

REPORT INFORMATION
  Report Type: 
  Country: None (occurrence: None)
  Receive Date: 20120218
  Receipt Date: 20111122
  Transmission Date: 20120608
  Serious: No
  Sender: FDA-Public Use
  Company Number: US-ALLERGAN-1115320US

PATIENT
  Age: 53 Year
  Sex: Female

DRUGS (2)
  1. JUVEDERM ULTRA PLUS [Suspect]
     Indication: SKIN WRINKLING
     Dosage: 10 UNITS, SINGLE
     Route: 058
  2. BOTOX COSMETIC [Suspect]
     Indication: SKIN WRINKLING
     Dosage: 40 UNITS, SINGLE
     Route: 030

REACTIONS (2)
  - INJECTION SITE RASH [None]
  - NO ADVERSE EVENT [None]
